FAERS Safety Report 6328855-4 (Version None)
Quarter: 2009Q3

REPORT INFORMATION
  Report Type: 
  Country: None (occurrence: None)
  Receive Date: 20090825
  Receipt Date: 20090825
  Transmission Date: 20100115
  Serious: Yes (Other)
  Sender: FDA-Public Use
  Company Number: None

PATIENT
  Age: 42 Year
  Sex: Female
  Weight: 53.0709 kg

DRUGS (3)
  1. ZOLOFT [Suspect]
     Indication: ANXIETY
     Dosage: 25 MG 1 DAILY FOR 1 WEEK INCREASE TO 50MG PO
     Route: 048
     Dates: start: 20090808, end: 20090813
  2. ZOLOFT [Suspect]
     Indication: DEPRESSION
     Dosage: 25 MG 1 DAILY FOR 1 WEEK INCREASE TO 50MG PO
     Route: 048
     Dates: start: 20090808, end: 20090813
  3. ZOLOFT [Suspect]
     Indication: PHOBIA
     Dosage: 25 MG 1 DAILY FOR 1 WEEK INCREASE TO 50MG PO
     Route: 048
     Dates: start: 20090808, end: 20090813

REACTIONS (19)
  - AGITATION [None]
  - ANXIETY [None]
  - DECREASED APPETITE [None]
  - DIARRHOEA [None]
  - DIZZINESS [None]
  - DYSPNOEA [None]
  - HEART RATE INCREASED [None]
  - MENSTRUATION IRREGULAR [None]
  - MOOD SWINGS [None]
  - MUSCLE TWITCHING [None]
  - NAUSEA [None]
  - NERVOUSNESS [None]
  - PARANOIA [None]
  - SENSITIVITY OF TEETH [None]
  - SLEEP DISORDER [None]
  - SUICIDAL IDEATION [None]
  - TREMOR [None]
  - VISION BLURRED [None]
  - WEIGHT DECREASED [None]
